FAERS Safety Report 7603722-4 (Version None)
Quarter: 2011Q2

REPORT INFORMATION
  Report Type: 
  Country: None (occurrence: None)
  Receive Date: 20110630
  Receipt Date: 20110620
  Transmission Date: 20111010
  Serious: Yes (Hospitalization)
  Sender: FDA-Public Use
  Company Number: 11-367

PATIENT
  Age: 76 Year
  Sex: Female

DRUGS (4)
  1. IBUPROFEN [Suspect]
     Indication: OSTEOARTHRITIS
     Dosage: ORAL
     Route: 048
  2. CALCIUM CHANNEL BLOCKERS [Concomitant]
  3. CALCIUM CARBONATE [Suspect]
     Indication: DYSPEPSIA
     Dosage: 6-8 TABLETS DAILY (~5.5 G); ORAL
     Route: 048
  4. ALBUTEROL [Concomitant]

REACTIONS (8)
  - POLYURIA [None]
  - HYPERCALCAEMIA [None]
  - DIARRHOEA [None]
  - MILK-ALKALI SYNDROME [None]
  - NOCTURIA [None]
  - CONSTIPATION [None]
  - POLYDIPSIA [None]
  - CHANGE OF BOWEL HABIT [None]
